FAERS Safety Report 19732651 (Version 3)
Quarter: 2021Q4

REPORT INFORMATION
  Report Type: Report from Study
  Country: US (occurrence: US)
  Receive Date: 20210823
  Receipt Date: 20211020
  Transmission Date: 20220303
  Serious: No
  Sender: FDA-Public Use
  Company Number: US-BOEHRINGERINGELHEIM-2021-BI-122792

PATIENT
  Age: 74 Year
  Sex: Female
  Weight: 87 kg

DRUGS (2)
  1. OFEV [Suspect]
     Active Substance: NINTEDANIB
     Indication: Interstitial lung disease
     Dosage: 100MG BID
     Route: 048
     Dates: start: 20210712, end: 20210819
  2. OFEV [Suspect]
     Active Substance: NINTEDANIB
     Dosage: 100MG QD
     Route: 048
     Dates: start: 20210909

REACTIONS (7)
  - Multiple allergies [Not Recovered/Not Resolved]
  - Nasal congestion [Unknown]
  - Rash [Recovered/Resolved]
  - Abdominal distension [Not Recovered/Not Resolved]
  - Oropharyngeal pain [Not Recovered/Not Resolved]
  - Neck pain [Not Recovered/Not Resolved]
  - Diarrhoea [Recovered/Resolved]

NARRATIVE: CASE EVENT DATE: 20210712
